FAERS Safety Report 4961107-3 (Version None)
Quarter: 2006Q1

REPORT INFORMATION
  Report Type: 
  Country: None (occurrence: None)
  Receive Date: 20060328
  Receipt Date: 20060317
  Transmission Date: 20060701
  Serious: Yes (Other)
  Sender: FDA-Public Use
  Company Number: 2006012152

PATIENT
  Sex: Male
  Weight: 95 kg

DRUGS (7)
  1. CELEBREX [Suspect]
     Indication: ARTHRALGIA
     Dosage: 200 MG (200 MG, 1 IN 1 D), ORAL
     Route: 048
     Dates: end: 20030401
  2. CELEBREX [Suspect]
     Indication: OSTEOARTHRITIS
     Dosage: 200 MG (200 MG, 1 IN 1 D), ORAL
     Route: 048
     Dates: end: 20030401
  3. SIMVASTATIN [Suspect]
     Indication: ILL-DEFINED DISORDER
     Dosage: (10 MG)
  4. BENDROFLUMETHIAZIDE (BENDROFLUMETHIAZIDE) [Suspect]
     Indication: ILL-DEFINED DISORDER
     Dosage: (2.5 MG)
  5. BETALOC (METOPROLOL TARTRATE [Concomitant]
  6. ASPIRIN [Concomitant]
  7. .. [Concomitant]

REACTIONS (3)
  - BLOOD PRESSURE INCREASED [None]
  - DEHYDRATION [None]
  - DRUG INTERACTION [None]
